FAERS Safety Report 4839790-2 (Version None)
Quarter: 2005Q4

REPORT INFORMATION
  Report Type: 
  Country: None (occurrence: None)
  Receive Date: 20051129
  Receipt Date: 20050913
  Transmission Date: 20060501
  Serious: No
  Sender: FDA-Public Use
  Company Number: US-GLAXOSMITHKLINE-A0573961A

PATIENT
  Age: 50 Year
  Sex: Male

DRUGS (1)
  1. WELLBUTRIN SR [Suspect]
     Dosage: 100MG PER DAY
     Route: 048

REACTIONS (1)
  - BLOOD PRESSURE INCREASED [None]
